FAERS Safety Report 9892372 (Version 2)
Quarter: 2014Q1

REPORT INFORMATION
  Report Type: Spontaneous
  Country: IT (occurrence: IT)
  Receive Date: 20140212
  Receipt Date: 20140214
  Transmission Date: 20141002
  Serious: Yes (Hospitalization)
  Sender: FDA-Public Use
  Company Number: IT-ASTRAZENECA-2014SE07987

PATIENT
  Age: 21072 Day
  Sex: Male

DRUGS (8)
  1. PROPOFOL (NON AZ PRODUCT) [Suspect]
     Indication: SEDATION
     Route: 042
     Dates: start: 20140117, end: 20140120
  2. CLEXANE [Concomitant]
     Indication: THROMBOSIS PROPHYLAXIS
     Route: 058
  3. LASIX [Concomitant]
     Route: 048
  4. BISOPROLOL [Concomitant]
     Route: 048
  5. LOSARTAN [Concomitant]
     Route: 048
  6. PANTOPRAZOLE [Concomitant]
     Route: 042
  7. IMIPENEM + CILASTATIN [Concomitant]
     Route: 042
     Dates: start: 20140129
  8. MIDAZOLAM [Concomitant]
     Indication: DELUSION
     Route: 042
     Dates: start: 20140121, end: 20140124

REACTIONS (1)
  - Delirium tremens [Unknown]
